FAERS Safety Report 8793804 (Version 3)
Quarter: 2013Q4

REPORT INFORMATION
  Report Type: Report from Study
  Country: JP (occurrence: JP)
  Receive Date: 20120917
  Receipt Date: 20131023
  Transmission Date: 20140711
  Serious: Yes (Hospitalization)
  Sender: FDA-Public Use
  Company Number: JP-VERTEX PHARMACEUTICAL INC.-AE-2012-009255

PATIENT
  Age: 45 Year
  Sex: Male

DRUGS (16)
  1. VX-950 (TELAPREVIR) [Suspect]
     Indication: CHRONIC HEPATITIS C
     Dosage: 2250 MG, QD
     Route: 048
     Dates: start: 20120308, end: 20120518
  2. REBETOL [Suspect]
     Indication: CHRONIC HEPATITIS C
     Dosage: 800 MG, QD
     Route: 048
     Dates: start: 20120308, end: 20120424
  3. REBETOL [Suspect]
     Dosage: 600 MG, QD
     Route: 048
     Dates: start: 20120425, end: 20120515
  4. REBETOL [Suspect]
     Dosage: 400 MG, QD
     Route: 048
     Dates: start: 20120516, end: 20120522
  5. PEGINTERFERON ALFA-2B [Suspect]
     Indication: CHRONIC HEPATITIS C
     Dosage: 1.5 ?G/KG, QW
     Route: 058
     Dates: start: 20120308, end: 20120515
  6. URSODEOXYCHOLIC ACID [Concomitant]
     Dosage: 600 MG, QD
     Route: 048
  7. URSODEOXYCHOLIC ACID [Concomitant]
     Dosage: 600 MG, QD
     Route: 048
     Dates: start: 20120619
  8. VOLTAREN [Concomitant]
     Dosage: 25 MG, PRN
     Route: 054
     Dates: start: 20120308, end: 20120523
  9. CALONAL [Concomitant]
     Dosage: 200 MG, PRN
     Route: 048
     Dates: start: 20120309
  10. NAUZELIN [Concomitant]
     Dosage: 10 MG, PRN
     Route: 048
     Dates: end: 20120523
  11. OMEPRAZOLE [Concomitant]
     Dosage: 20 MG, QD
     Route: 048
     Dates: start: 20120309, end: 20120523
  12. RIZE [Concomitant]
     Dosage: 5 MG, QD
     Route: 048
     Dates: start: 20120309, end: 20120416
  13. RIZE [Concomitant]
     Dosage: 5 MG, PRN
     Route: 048
     Dates: start: 20120619
  14. ALLOZYM [Concomitant]
     Dosage: 100 MG, QD
     Route: 048
     Dates: end: 20120523
  15. RABEPRAZOLE [Concomitant]
     Dosage: 20 MG, QD
     Route: 048
     Dates: start: 20120523, end: 20120624
  16. KOBALNON [Concomitant]
     Dosage: 150 MG, QD
     Route: 048
     Dates: end: 20120624

REACTIONS (2)
  - Drug eruption [Recovered/Resolved]
  - Nausea [Unknown]
